FAERS Safety Report 7655253-3 (Version None)
Quarter: 2011Q3

REPORT INFORMATION
  Report Type: 
  Country: None (occurrence: None)
  Receive Date: 20110804
  Receipt Date: 20110727
  Transmission Date: 20111222
  Serious: Yes (Other)
  Sender: FDA-Public Use
  Company Number: US-JNJFOC-20110712012

PATIENT
  Sex: Male

DRUGS (1)
  1. DESITIN MAXIMUM STRENGTH ORIGINAL [Suspect]
     Indication: PRODUCT USED FOR UNKNOWN INDICATION
     Route: 047

REACTIONS (2)
  - BLINDNESS [None]
  - INCORRECT ROUTE OF DRUG ADMINISTRATION [None]
